FAERS Safety Report 15344677 (Version 1)
Quarter: 2018Q3

REPORT INFORMATION
  Report Type: Spontaneous
  Country: FR (occurrence: FR)
  Receive Date: 20180903
  Receipt Date: 20180903
  Transmission Date: 20181010
  Serious: Yes (Hospitalization)
  Sender: FDA-Public Use
  Company Number: FR-PFIZER INC-2018347392

PATIENT
  Age: 73 Year
  Sex: Female

DRUGS (5)
  1. IZALGI [Suspect]
     Active Substance: ACETAMINOPHEN\OPIUM
     Indication: SUICIDE ATTEMPT
     Dosage: UNK
     Route: 048
     Dates: start: 20180514, end: 20180514
  2. EFFEXOR LP [Suspect]
     Active Substance: VENLAFAXINE HYDROCHLORIDE
     Indication: SUICIDE ATTEMPT
     Dosage: UNK
     Route: 048
     Dates: start: 20180514, end: 20180514
  3. ZOLPIDEM [Suspect]
     Active Substance: ZOLPIDEM\ZOLPIDEM TARTRATE
     Indication: SUICIDE ATTEMPT
     Dosage: 12 DF, SINGLE
     Route: 048
     Dates: start: 20180514, end: 20180514
  4. PARACETAMOL [Suspect]
     Active Substance: ACETAMINOPHEN
     Indication: SUICIDE ATTEMPT
     Dosage: 15 G, SINGLE
     Route: 048
     Dates: start: 20180514, end: 20180514
  5. RAMIPRIL. [Suspect]
     Active Substance: RAMIPRIL
     Indication: SUICIDE ATTEMPT
     Dosage: UNK
     Route: 048
     Dates: start: 20180514, end: 20180514

REACTIONS (4)
  - Suicide attempt [Recovered/Resolved]
  - Toxicity to various agents [Recovered/Resolved]
  - Hypertension [Recovered/Resolved]
  - Somnolence [Recovered/Resolved]

NARRATIVE: CASE EVENT DATE: 20180514
